FAERS Safety Report 16698398 (Version 1)
Quarter: 2019Q3

REPORT INFORMATION
  Report Type: Spontaneous
  Country: US (occurrence: US)
  Receive Date: 20190627
  Receipt Date: 20190627
  Transmission Date: 20191004
  Serious: No
  Sender: FDA-Public Use
  Company Number: None

PATIENT
  Age: 57 Year
  Sex: Female

DRUGS (1)
  1. LUCENTIS [Suspect]
     Active Substance: RANIBIZUMAB
     Indication: PRODUCT USED FOR UNKNOWN INDICATION
     Dosage: ?          OTHER DOSE:0.5 MG SYR;OTHER FREQUENCY:Q 4 WKS;?
     Route: 047
     Dates: start: 20181130

REACTIONS (2)
  - Neoplasm malignant [None]
  - Limb operation [None]

NARRATIVE: CASE EVENT DATE: 20190605
